FAERS Safety Report 13376923 (Version 1)
Quarter: 2017Q1

REPORT INFORMATION
  Report Type: Report from Study
  Country: DE (occurrence: DE)
  Receive Date: 20170328
  Receipt Date: 20170328
  Transmission Date: 20170429
  Serious: Yes (Other)
  Sender: FDA-Public Use
  Company Number: DE-SA-2017SA027442

PATIENT
  Age: 39 Year
  Sex: Female

DRUGS (1)
  1. LEMTRADA [Suspect]
     Active Substance: ALEMTUZUMAB
     Indication: MULTIPLE SCLEROSIS
     Route: 041
     Dates: start: 20170123, end: 20170127

REACTIONS (9)
  - Gait disturbance [Recovering/Resolving]
  - Muscular weakness [Unknown]
  - Stress [Recovering/Resolving]
  - Crying [Unknown]
  - Asthenia [Recovering/Resolving]
  - Headache [Recovered/Resolved]
  - Hypoaesthesia [Unknown]
  - Hemiparesis [Recovering/Resolving]
  - Condition aggravated [Recovering/Resolving]

NARRATIVE: CASE EVENT DATE: 2017
